FAERS Safety Report 5369667-8 (Version None)
Quarter: 2007Q2

REPORT INFORMATION
  Report Type: 
  Country: None (occurrence: None)
  Receive Date: 20070621
  Receipt Date: 20070612
  Transmission Date: 20071010
  Serious: Yes (Hospitalization)
  Sender: FDA-Public Use
  Company Number: 2007-01586

PATIENT
  Age: 48 Year
  Sex: Female
  Weight: 99.7 kg

DRUGS (47)
  1. VELCADE [Suspect]
     Indication: MULTIPLE MYELOMA
     Dosage: SEE IMAGE
     Dates: start: 20040710, end: 20040720
  2. VELCADE [Suspect]
     Indication: MULTIPLE MYELOMA
     Dosage: SEE IMAGE
     Dates: start: 20040812, end: 20040822
  3. VELCADE [Suspect]
     Indication: MULTIPLE MYELOMA
     Dosage: SEE IMAGE
     Dates: start: 20050228, end: 20050311
  4. VELCADE [Suspect]
     Indication: MULTIPLE MYELOMA
     Dosage: SEE IMAGE
     Dates: start: 20050504, end: 20050514
  5. VELCADE [Suspect]
     Indication: MULTIPLE MYELOMA
     Dosage: SEE IMAGE
     Dates: start: 20050802, end: 20050812
  6. VELCADE [Suspect]
     Indication: MULTIPLE MYELOMA
     Dosage: SEE IMAGE
     Dates: start: 20050830, end: 20050909
  7. VELCADE [Suspect]
     Indication: MULTIPLE MYELOMA
     Dosage: SEE IMAGE
     Dates: start: 20050927, end: 20051007
  8. VELCADE [Suspect]
     Indication: MULTIPLE MYELOMA
     Dosage: SEE IMAGE
     Dates: start: 20051025, end: 20051104
  9. VELCADE [Suspect]
     Indication: MULTIPLE MYELOMA
     Dosage: SEE IMAGE
     Dates: start: 20051129, end: 20051209
  10. VELCADE [Suspect]
     Indication: MULTIPLE MYELOMA
     Dosage: SEE IMAGE
     Dates: start: 20051227, end: 20060106
  11. VELCADE [Suspect]
     Indication: MULTIPLE MYELOMA
     Dosage: SEE IMAGE
     Dates: start: 20060124, end: 20060203
  12. VELCADE [Suspect]
     Indication: MULTIPLE MYELOMA
     Dosage: SEE IMAGE
     Dates: start: 20060221, end: 20060303
  13. VELCADE [Suspect]
     Indication: MULTIPLE MYELOMA
     Dosage: SEE IMAGE
     Dates: start: 20060321, end: 20060331
  14. VELCADE [Suspect]
     Indication: MULTIPLE MYELOMA
     Dosage: SEE IMAGE
     Dates: start: 20060418, end: 20060428
  15. VELCADE [Suspect]
     Indication: MULTIPLE MYELOMA
     Dosage: SEE IMAGE
     Dates: start: 20060516, end: 20060526
  16. VELCADE [Suspect]
     Indication: MULTIPLE MYELOMA
     Dosage: SEE IMAGE
     Dates: start: 20060613, end: 20060623
  17. DEXAMETHASONE [Suspect]
     Indication: MULTIPLE MYELOMA
     Dates: start: 20061128, end: 20061201
  18. DEXAMETHASONE [Suspect]
     Indication: MULTIPLE MYELOMA
     Dates: start: 20040710
  19. DEXAMETHASONE [Suspect]
     Indication: MULTIPLE MYELOMA
     Dates: start: 20040812
  20. DEXAMETHASONE [Suspect]
     Indication: MULTIPLE MYELOMA
     Dates: start: 20060613
  21. THALIDOMIDE [Suspect]
     Indication: MULTIPLE MYELOMA
     Dates: start: 20040710
  22. THALIDOMIDE [Suspect]
     Indication: MULTIPLE MYELOMA
     Dates: start: 20040812
  23. THALIDOMIDE [Suspect]
     Indication: MULTIPLE MYELOMA
     Dates: start: 20060613
  24. THALIDOMIDE [Suspect]
     Indication: MULTIPLE MYELOMA
     Dates: start: 20061013
  25. CISPLATIN [Suspect]
     Indication: MULTIPLE MYELOMA
     Dates: start: 20040710
  26. DOXORUBICIN HCL [Suspect]
     Indication: MULTIPLE MYELOMA
     Dates: start: 20040710
  27. DOXORUBICIN HCL [Suspect]
     Indication: MULTIPLE MYELOMA
     Dates: start: 20040812
  28. DOXORUBICIN HCL [Suspect]
     Indication: MULTIPLE MYELOMA
     Dates: start: 20060613
  29. CYCLOPHOSPHAMIDE [Suspect]
     Indication: MULTIPLE MYELOMA
     Dates: start: 20040710
  30. CYCLOPHOSPHAMIDE [Suspect]
     Indication: MULTIPLE MYELOMA
     Dates: start: 20040812
  31. CYCLOPHOSPHAMIDE [Suspect]
     Indication: MULTIPLE MYELOMA
     Dates: start: 20060613
  32. ETOPOSIDE [Suspect]
     Indication: MULTIPLE MYELOMA
     Dates: start: 20040710
  33. ETOPOSIDE [Suspect]
     Indication: MULTIPLE MYELOMA
     Dates: start: 20040812
  34. ETOPOSIDE [Suspect]
     Indication: MULTIPLE MYELOMA
     Dates: start: 20060613
  35. MELPHALAN(MELPHALAN)VIAL [Suspect]
     Indication: MULTIPLE MYELOMA
     Dates: start: 20040924
  36. MELPHALAN(MELPHALAN)VIAL [Suspect]
     Indication: MULTIPLE MYELOMA
     Dates: start: 20041206
  37. XOPENEX [Suspect]
  38. ADVAIR DISKUS 100/50 [Concomitant]
  39. LEVAQUIN [Concomitant]
  40. ACYCLOVIR [Concomitant]
  41. FOLIC ACID [Concomitant]
  42. OXYCODONE HCL [Concomitant]
  43. DURAGESIC-100 [Concomitant]
  44. ASCORBIC ACID [Concomitant]
  45. DIFLUCAN [Concomitant]
  46. ZANTAC [Concomitant]
  47. PREDNISONE TAB [Concomitant]

REACTIONS (10)
  - BLOOD GLUCOSE INCREASED [None]
  - BREATH SOUNDS ABNORMAL [None]
  - CHEST PAIN [None]
  - COUGH [None]
  - DYSPNOEA [None]
  - NASAL SEPTUM DEVIATION [None]
  - PAINFUL RESPIRATION [None]
  - PLEURITIC PAIN [None]
  - PULMONARY EMBOLISM [None]
  - WHEEZING [None]
